FAERS Safety Report 25009987 (Version 1)
Quarter: 2025Q1

REPORT INFORMATION
  Report Type: Spontaneous
  Country: CH (occurrence: CH)
  Receive Date: 20250225
  Receipt Date: 20250225
  Transmission Date: 20250409
  Serious: Yes (Other)
  Sender: AMERICAN REGENT
  Company Number: CH-AMERICAN REGENT INC-2025000831

PATIENT
  Age: 31 Year
  Sex: Female
  Weight: 70.2 kg

DRUGS (1)
  1. FERINJECT [Suspect]
     Active Substance: FERRIC CARBOXYMALTOSE
     Indication: Product used for unknown indication
     Route: 041
     Dates: start: 20240925, end: 20240925

REACTIONS (9)
  - Hydronephrosis [Unknown]
  - Urinary retention [Unknown]
  - Haemorrhage [Not Recovered/Not Resolved]
  - Haematoma [Not Recovered/Not Resolved]
  - Perineal injury [Unknown]
  - Maternal exposure during pregnancy [Unknown]
  - Infusion site extravasation [Not Recovered/Not Resolved]
  - Infusion site swelling [Not Recovered/Not Resolved]
  - Infusion site discolouration [Not Recovered/Not Resolved]

NARRATIVE: CASE EVENT DATE: 20240925
